FAERS Safety Report 6442184-X (Version None)
Quarter: 2009Q4

REPORT INFORMATION
  Report Type: 
  Country: None (occurrence: None)
  Receive Date: 20091112
  Receipt Date: 20091102
  Transmission Date: 20100525
  Serious: Yes (Other)
  Sender: FDA-Public Use
  Company Number: ADR46812009

PATIENT
  Age: 68 Year
  Sex: Female

DRUGS (6)
  1. SIMVASTATIN [Suspect]
     Indication: BLOOD CHOLESTEROL INCREASED
     Route: 048
     Dates: start: 20061220, end: 20070314
  2. BUMEATIDE [Concomitant]
  3. COVERSYL [Concomitant]
  4. FLUVOXAMINE MALEATE [Concomitant]
  5. LEVOTHYROXINE [Concomitant]
  6. TEGRETOL RETARD [Concomitant]

REACTIONS (4)
  - ALOPECIA [None]
  - ASTHENIA [None]
  - FORMICATION [None]
  - PARAESTHESIA [None]
